FAERS Safety Report 9530642 (Version 2)
Quarter: 2014Q1

REPORT INFORMATION
  Report Type: Spontaneous
  Country: GB (occurrence: GB)
  Receive Date: 20130918
  Receipt Date: 20140110
  Transmission Date: 20141002
  Serious: Yes (Other)
  Sender: FDA-Public Use
  Company Number: GB-MERCK-1309IRL007133

PATIENT
  Age: 70 Year
  Sex: Male

DRUGS (6)
  1. JANUMET [Suspect]
     Route: 048
  2. CLOPIDOGREL [Concomitant]
  3. GLICLAZIDE [Concomitant]
  4. ATORVASTATIN [Concomitant]
  5. ASPIRIN [Concomitant]
  6. BISOPROLOL [Concomitant]

REACTIONS (3)
  - Cerebrovascular accident [Unknown]
  - Gastrointestinal tube insertion [Unknown]
  - Dysphagia [Unknown]
